FAERS Safety Report 8661888 (Version 3)
Quarter: 2013Q4

REPORT INFORMATION
  Report Type: Spontaneous
  Country: US (occurrence: US)
  Receive Date: 20120712
  Receipt Date: 20131101
  Transmission Date: 20140711
  Serious: No
  Sender: FDA-Public Use
  Company Number: US-009507513-2012SP029669

PATIENT
  Sex: 0

DRUGS (1)
  1. DULERA [Suspect]
     Indication: CHRONIC OBSTRUCTIVE PULMONARY DISEASE
     Dosage: 2-4 PUFFS / TWICE DAILY
     Route: 055
     Dates: start: 201202, end: 201202

REACTIONS (3)
  - Drug ineffective for unapproved indication [Unknown]
  - Drug dose omission [Unknown]
  - Off label use [Unknown]
